FAERS Safety Report 21361764 (Version 1)
Quarter: 2022Q3

REPORT INFORMATION
  Report Type: Report from Study
  Country: US (occurrence: None)
  Receive Date: 20220921
  Receipt Date: 20220921
  Transmission Date: 20221026
  Serious: Yes (Other)
  Sender: FDA-Public Use
  Company Number: US-Merck Healthcare KGaA-9309935

PATIENT
  Sex: Female

DRUGS (1)
  1. REBIF [Suspect]
     Active Substance: INTERFERON BETA-1A
     Indication: Multiple sclerosis
     Route: 058
     Dates: start: 20090729

REACTIONS (6)
  - Atrial fibrillation [Recovered/Resolved]
  - Fatigue [Unknown]
  - Pain in extremity [Unknown]
  - Neuralgia [Unknown]
  - Balance disorder [Unknown]
  - Tremor [Unknown]
